FAERS Safety Report 5513309-5 (Version None)
Quarter: 2007Q4

REPORT INFORMATION
  Report Type: 
  Country: None (occurrence: None)
  Receive Date: 20071112
  Receipt Date: 20071031
  Transmission Date: 20080405
  Serious: Yes (Other)
  Sender: FDA-Public Use
  Company Number: US-PFIZER INC-2007092144

PATIENT
  Sex: Male

DRUGS (2)
  1. DILANTIN [Suspect]
  2. PHENYTOIN SUSPENSION [Suspect]

REACTIONS (2)
  - DISABILITY [None]
  - MOUTH INJURY [None]
